FAERS Safety Report 25263390 (Version 1)
Quarter: 2025Q2

REPORT INFORMATION
  Report Type: Spontaneous
  Country: CN (occurrence: CN)
  Receive Date: 20250502
  Receipt Date: 20250502
  Transmission Date: 20250716
  Serious: Yes (Other)
  Sender: AMGEN
  Company Number: CN-AMGEN-CHNSP2025085865

PATIENT

DRUGS (1)
  1. BLINATUMOMAB [Suspect]
     Active Substance: BLINATUMOMAB
     Indication: B-cell type acute leukaemia
     Route: 065

REACTIONS (19)
  - Hypokalaemia [Unknown]
  - Neutropenia [Unknown]
  - Febrile neutropenia [Unknown]
  - Thrombocytopenia [Unknown]
  - Cytokine release syndrome [Unknown]
  - Leukopenia [Unknown]
  - Arrhythmia [Unknown]
  - Anaemia [Unknown]
  - Pyrexia [Unknown]
  - Infection [Unknown]
  - Neurological symptom [Unknown]
  - Nausea [Unknown]
  - Transaminases increased [Unknown]
  - Activated partial thromboplastin time prolonged [Unknown]
  - Blood fibrinogen decreased [Unknown]
  - Blood fibrinogen increased [Unknown]
  - Rash [Unknown]
  - Hypocalcaemia [Unknown]
  - Dyspnoea [Unknown]
